FAERS Safety Report 7707641-4 (Version None)
Quarter: 2011Q3

REPORT INFORMATION
  Report Type: 
  Country: None (occurrence: None)
  Receive Date: 20110824
  Receipt Date: 20110816
  Transmission Date: 20111222
  Serious: Yes (Death)
  Sender: FDA-Public Use
  Company Number: US-CELGENEUS-163-21880-10122992

PATIENT
  Sex: Male

DRUGS (7)
  1. CALCIUM PLUS VITAMIN D [Concomitant]
     Route: 065
  2. VELCADE [Concomitant]
     Dosage: 3.5 MILLIGRAM
     Route: 065
  3. REVLIMID [Suspect]
     Indication: MULTIPLE MYELOMA
     Dosage: 15 MILLIGRAM
     Route: 048
     Dates: start: 20101101
  4. EFFEXOR [Concomitant]
     Dosage: 100 MILLIGRAM
     Route: 065
  5. HUMALOG [Concomitant]
     Dosage: 100 MILLILITER
     Route: 065
  6. ZOVIRAX [Concomitant]
     Dosage: 400 MILLIGRAM
     Route: 065
  7. VITAMIN K TAB [Concomitant]
     Dosage: 100 MICROGRAM
     Route: 065

REACTIONS (2)
  - DEATH [None]
  - CONSTIPATION [None]
